FAERS Safety Report 21314828 (Version 4)
Quarter: 2023Q1

REPORT INFORMATION
  Report Type: Spontaneous
  Country: US (occurrence: US)
  Receive Date: 20220909
  Receipt Date: 20230113
  Transmission Date: 20230417
  Serious: Yes (Hospitalization)
  Sender: FDA-Public Use
  Company Number: US-PFIZER INC-202201141705

PATIENT
  Age: 78 Year
  Sex: Female
  Weight: 72.57 kg

DRUGS (1)
  1. TIKOSYN [Suspect]
     Active Substance: DOFETILIDE
     Indication: Atrial fibrillation
     Dosage: 250 MG, 2X/DAY
     Route: 048
     Dates: start: 202203, end: 20220903

REACTIONS (2)
  - Urinary tract infection [Unknown]
  - Wrong strength [Unknown]
